FAERS Safety Report 9301390 (Version 2)
Quarter: 2013Q2

REPORT INFORMATION
  Report Type: Spontaneous
  Country: US (occurrence: US)
  Receive Date: 20130521
  Receipt Date: 20130613
  Transmission Date: 20140414
  Serious: Yes (Life-Threatening, Hospitalization, Other)
  Sender: FDA-Public Use
  Company Number: US-ASTRAZENECA-2013SE35206

PATIENT
  Age: 474 Month
  Sex: Female

DRUGS (12)
  1. SEROQUEL XR [Suspect]
     Indication: BIPOLAR DISORDER
     Route: 048
     Dates: start: 2010
  2. SEROQUEL XR [Suspect]
     Indication: PSYCHOTIC DISORDER
     Route: 048
     Dates: start: 2010
  3. SEROQUEL XR [Suspect]
     Indication: BIPOLAR DISORDER
     Dosage: TOOK INTENTIONAL OVERDOSE
     Route: 048
     Dates: start: 20130507
  4. SEROQUEL XR [Suspect]
     Indication: PSYCHOTIC DISORDER
     Dosage: TOOK INTENTIONAL OVERDOSE
     Route: 048
     Dates: start: 20130507
  5. LAMOTRIGINE [Concomitant]
     Indication: BIPOLAR DISORDER
     Route: 048
  6. LAMOTRIGINE [Concomitant]
     Indication: MOOD ALTERED
     Route: 048
  7. BUSPIRONE [Concomitant]
     Indication: ANXIETY
  8. BUSPIRONE [Concomitant]
     Indication: ANXIETY
     Route: 048
  9. CITALOPRAM [Concomitant]
     Indication: DEPRESSION
     Route: 048
  10. HYDROXYZINE [Concomitant]
     Indication: ANXIETY
  11. HYDROXYZINE [Concomitant]
     Indication: ANXIETY
     Dosage: 50 MG, 2 TID, AS REQUIRED
  12. TRAZODONE [Concomitant]
     Indication: SLEEP DISORDER
     Dosage: 50 MG, AT NIGHT, AS REQUIRED. TO STOP WHEN STARTED SEROQUEL XR
     Route: 048

REACTIONS (4)
  - Intentional overdose [Recovering/Resolving]
  - Suicide attempt [Recovering/Resolving]
  - Loss of consciousness [Recovered/Resolved]
  - Intentional drug misuse [Unknown]
